FAERS Safety Report 5751728-2 (Version None)
Quarter: 2008Q2

REPORT INFORMATION
  Report Type: 
  Country: None (occurrence: None)
  Receive Date: 20080529
  Receipt Date: 20080117
  Transmission Date: 20081010
  Serious: No
  Sender: FDA-Public Use
  Company Number: US-BAXTER-2008BH005317

PATIENT
  Sex: Female
  Weight: 107 kg

DRUGS (2)
  1. HEPARIN SODIUM INJECTION [Suspect]
     Indication: THROMBOSIS PROPHYLAXIS
     Route: 065
     Dates: start: 20080117, end: 20080117
  2. HEPARIN SODIUM INJECTION [Suspect]
     Route: 065
     Dates: start: 20080117, end: 20080117

REACTIONS (3)
  - ABDOMINAL PAIN [None]
  - BLOOD PRESSURE DECREASED [None]
  - FEELING HOT [None]
